FAERS Safety Report 20321947 (Version 15)
Quarter: 2022Q2

REPORT INFORMATION
  Report Type: Report from Study
  Country: ES (occurrence: None)
  Receive Date: 20220111
  Receipt Date: 20220628
  Transmission Date: 20220720
  Serious: Yes (Hospitalization)
  Sender: FDA-Public Use
  Company Number: ES-Eisai Medical Research-EC-2022-106482

PATIENT
  Age: 47 Year
  Sex: Female
  Weight: 62 kg

DRUGS (10)
  1. LENVATINIB [Suspect]
     Active Substance: LENVATINIB
     Indication: Renal cell carcinoma
     Route: 048
     Dates: start: 20210930, end: 20211102
  2. LENVATINIB [Suspect]
     Active Substance: LENVATINIB
     Route: 048
     Dates: start: 20211110, end: 20211221
  3. LENVATINIB [Suspect]
     Active Substance: LENVATINIB
     Dosage: STARTING DOSE AT 14 MILLIGRAM, FLUCTUATED DOSAGE
     Route: 048
     Dates: start: 20220127
  4. FAVEZELIMAB [Suspect]
     Active Substance: FAVEZELIMAB
     Indication: Renal cell carcinoma
     Dosage: 1000 MG MK-4280A (800 MG MK-4280 + 200 MG MK-3475)
     Route: 041
     Dates: start: 20210930, end: 20210930
  5. FAVEZELIMAB [Suspect]
     Active Substance: FAVEZELIMAB
     Dosage: 1000 MG MK-4280A (800 MG MK-4280 + 200 MG MK-3475)
     Route: 041
     Dates: start: 20211020, end: 20211020
  6. FAVEZELIMAB [Suspect]
     Active Substance: FAVEZELIMAB
     Dosage: 1000 MG MK-4280A (800 MG MK-4280 + 200 MG MK-3475)
     Route: 041
     Dates: start: 20211110
  7. MOTILIUM [Concomitant]
     Active Substance: DOMPERIDONE
     Dates: start: 202108
  8. PEMBROLIZUMAB [Suspect]
     Active Substance: PEMBROLIZUMAB
  9. PEMBROLIZUMAB [Suspect]
     Active Substance: PEMBROLIZUMAB
  10. PEMBROLIZUMAB [Suspect]
     Active Substance: PEMBROLIZUMAB

REACTIONS (2)
  - Lipase increased [Recovered/Resolved]
  - Amylase increased [Recovering/Resolving]

NARRATIVE: CASE EVENT DATE: 20211108
